FAERS Safety Report 7354851-4 (Version None)
Quarter: 2011Q1

REPORT INFORMATION
  Report Type: 
  Country: None (occurrence: None)
  Receive Date: 20110311
  Receipt Date: 20110311
  Transmission Date: 20110831
  Serious: Yes (Other)
  Sender: FDA-Public Use
  Company Number: None

PATIENT
  Sex: Female
  Weight: 73.9363 kg

DRUGS (3)
  1. HYDROCODONE BITARTRATE + ACETAMINOPHEN [Suspect]
     Indication: DENTAL DISCOMFORT
     Dosage: HYDROCOLAPAPS 500 MG AS NEEDED OR EVERY 6 HRS ORAL
     Route: 048
     Dates: start: 20110301, end: 20110302
  2. PRAVASTATIN [Suspect]
  3. GEMFIBROZIL [Suspect]

REACTIONS (1)
  - ABDOMINAL PAIN [None]
